FAERS Safety Report 9355814 (Version 7)
Quarter: 2014Q1

REPORT INFORMATION
  Report Type: Spontaneous
  Country: US (occurrence: US)
  Receive Date: 20130619
  Receipt Date: 20140314
  Transmission Date: 20141002
  Serious: Yes (Hospitalization)
  Sender: FDA-Public Use
  Company Number: US-JNJFOC-20130606801

PATIENT
  Age: 90 Year
  Sex: Male
  Weight: 66.68 kg

DRUGS (12)
  1. XARELTO [Suspect]
     Indication: CEREBROVASCULAR ACCIDENT PROPHYLAXIS
     Route: 048
     Dates: start: 201211, end: 20130604
  2. XARELTO [Suspect]
     Indication: ATRIAL FIBRILLATION
     Route: 048
     Dates: start: 201211, end: 20130604
  3. CARDIZEM [Concomitant]
     Dosage: 360 AND 240 MG ALTERNATING
     Route: 065
  4. VANCOMYCIN [Concomitant]
     Route: 065
  5. LEVOPHED [Concomitant]
     Route: 065
  6. SIMVASTATIN [Concomitant]
     Route: 065
  7. PANTOPRAZOLE [Concomitant]
     Route: 065
  8. SERTRALINE [Concomitant]
     Route: 065
  9. TRAZODONE [Concomitant]
     Route: 065
  10. VISTARIL [Concomitant]
     Route: 065
  11. NAMENDA [Concomitant]
     Route: 065
  12. DONEZEPIL [Concomitant]
     Route: 065

REACTIONS (1)
  - Pulmonary alveolar haemorrhage [Recovering/Resolving]
